FAERS Safety Report 7549180-X (Version None)
Quarter: 2011Q2

REPORT INFORMATION
  Report Type: 
  Country: None (occurrence: None)
  Receive Date: 20110615
  Receipt Date: 20110606
  Transmission Date: 20111010
  Serious: No
  Sender: FDA-Public Use
  Company Number: PHHY2011US23116

PATIENT
  Sex: Female
  Weight: 43 kg

DRUGS (17)
  1. IBUPROFEN [Concomitant]
  2. ZOLPIDEM [Concomitant]
  3. PSEUDOEPHEDRINE HCL [Concomitant]
  4. MELATONIN [Concomitant]
  5. MIRALAX [Concomitant]
  6. METHOCARBAMOL [Concomitant]
  7. HYDROCODONE BITARTRATE [Concomitant]
  8. CALCIUM CARBONATE [Concomitant]
     Dosage: 500 PER DAY
  9. ACIPHEX [Concomitant]
     Dosage: UNK
  10. ALPRAZOLAM [Concomitant]
  11. TASIGNA [Suspect]
     Indication: CHRONIC MYELOID LEUKAEMIA
     Dosage: 400 MG, BID
     Route: 048
     Dates: start: 20110201
  12. PROPRANOLOL HCL [Concomitant]
  13. GABAPENTIN [Concomitant]
  14. GLUCOSAMINE [Concomitant]
  15. SUCRALFATE [Concomitant]
  16. ONDANSETRON HYDROCHLORIDE [Concomitant]
  17. CHONDROITIN SULFATE [Concomitant]

REACTIONS (3)
  - ARTHRALGIA [None]
  - NAUSEA [None]
  - FATIGUE [None]
